FAERS Safety Report 5703709-2 (Version None)
Quarter: 2008Q2

REPORT INFORMATION
  Report Type: 
  Country: None (occurrence: None)
  Receive Date: 20080413
  Receipt Date: 20080404
  Transmission Date: 20081010
  Serious: Yes (Hospitalization)
  Sender: FDA-Public Use
  Company Number: PHHY2008JP04887

PATIENT
  Age: 78 Year
  Sex: Male

DRUGS (7)
  1. ZOMETA [Suspect]
     Indication: METASTASES TO BONE
     Dosage: 4 MG
     Route: 042
     Dates: start: 20080125, end: 20080125
  2. ZOMETA [Suspect]
     Route: 042
     Dates: start: 20080215, end: 20080215
  3. ZYPREXA [Concomitant]
     Dosage: 5 MG
     Route: 048
     Dates: start: 20080214
  4. LANDSEN [Concomitant]
     Dosage: 0.25 MG
     Route: 048
     Dates: start: 20080215
  5. ESTRACYT                                /SCH/ [Concomitant]
     Dosage: 2 DF
     Route: 048
     Dates: start: 20070903
  6. OXYCONTIN [Concomitant]
     Dosage: 10 MG
     Route: 048
     Dates: start: 20080127
  7. OPSO DAINIPPON [Concomitant]
     Dosage: 5 MG
     Route: 048
     Dates: start: 20080218

REACTIONS (2)
  - HYPOCALCAEMIA [None]
  - MALAISE [None]
